FAERS Safety Report 6666871-3 (Version None)
Quarter: 2010Q2

REPORT INFORMATION
  Report Type: 
  Country: None (occurrence: None)
  Receive Date: 20100405
  Receipt Date: 20100324
  Transmission Date: 20101027
  Serious: Yes (Hospitalization)
  Sender: FDA-Public Use
  Company Number: JP-BAYER-JP-SHR-03-013624

PATIENT
  Age: 27 Year
  Sex: Female

DRUGS (28)
  1. BETAFERON [Suspect]
     Indication: RELAPSING-REMITTING MULTIPLE SCLEROSIS
     Dosage: TOTAL DAILY DOSE: 8 MIU  UNIT DOSE: 9.6 MIU
     Route: 058
     Dates: start: 20010321
  2. BETAFERON [Suspect]
     Dosage: TOTAL DAILY DOSE: 8 MIU  UNIT DOSE: 9.6 MIU
     Route: 058
     Dates: start: 20040401, end: 20050302
  3. PREDNISOLONE [Suspect]
     Route: 048
     Dates: start: 20050101
  4. FAMOTIDINE [Suspect]
     Route: 048
     Dates: start: 20050101
  5. MUCOSTA [Suspect]
     Route: 048
     Dates: start: 20050101
  6. VITAMEDIN [Suspect]
     Route: 048
     Dates: start: 20050101
  7. ULCERLMIN [Suspect]
     Route: 048
     Dates: start: 20050101
  8. HALCION [Suspect]
     Route: 048
     Dates: start: 20050101
  9. METHYCOBAL [Concomitant]
     Indication: RELAPSING-REMITTING MULTIPLE SCLEROSIS
     Dosage: UNIT DOSE: 1500 ?G
     Route: 048
     Dates: start: 19970320
  10. MAGNESIUM OXIDE [Concomitant]
     Indication: CONSTIPATION
     Dosage: UNIT DOSE: 1.5 G
     Route: 048
     Dates: start: 20020403
  11. PREDNISOLON [Concomitant]
     Indication: RELAPSING-REMITTING MULTIPLE SCLEROSIS
     Dosage: UNIT DOSE: 25 MG
     Route: 048
     Dates: start: 20020403, end: 20020805
  12. PREDNISOLON [Concomitant]
     Dosage: UNIT DOSE: 30 MG
     Route: 048
     Dates: start: 20010610, end: 20011210
  13. PREDNISOLON [Concomitant]
     Dosage: UNIT DOSE: 40 MG
     Route: 048
     Dates: start: 20020825, end: 20021210
  14. PREDNISOLON [Concomitant]
     Dosage: UNIT DOSE: 40 MG
     Route: 048
     Dates: start: 20021214, end: 20030401
  15. SOLU-MEDROL [Concomitant]
     Indication: RELAPSING-REMITTING MULTIPLE SCLEROSIS
     Dosage: UNIT DOSE: 1000 MG
     Route: 042
     Dates: start: 20010626, end: 20010630
  16. SOLU-MEDROL [Concomitant]
     Dosage: UNIT DOSE: 1000 MG
     Route: 042
     Dates: start: 20020822, end: 20020824
  17. SOLU-MEDROL [Concomitant]
     Dosage: UNIT DOSE: 1000 MG
     Route: 042
     Dates: start: 20010618, end: 20010620
  18. SOLU-MEDROL [Concomitant]
     Dosage: UNIT DOSE: 1000 MG
     Route: 042
     Dates: start: 20010607, end: 20010609
  19. SOLU-MEDROL [Concomitant]
     Dosage: UNIT DOSE: 1000 MG
     Route: 042
     Dates: start: 20021211, end: 20021213
  20. FAMOTIDINE [Concomitant]
     Indication: PROPHYLAXIS AGAINST GASTROINTESTINAL ULCER
     Dosage: UNIT DOSE: 40 MG
     Route: 048
     Dates: start: 20010606, end: 20010907
  21. FAMOTIDINE [Concomitant]
     Dosage: UNIT DOSE: 20 MG
     Route: 048
     Dates: start: 20010918, end: 20011210
  22. FAMOTIDINE [Concomitant]
     Dosage: UNIT DOSE: 40 MG
     Route: 048
     Dates: start: 20021209, end: 20030106
  23. FAMOTIDINE [Concomitant]
     Dosage: UNIT DOSE: 20 MG
     Route: 048
     Dates: start: 20020806, end: 20020813
  24. FAMOTIDINE [Concomitant]
     Dosage: UNIT DOSE: 20 MG
     Route: 048
     Dates: start: 20030107, end: 20030401
  25. FAMOTIDINE [Concomitant]
     Dosage: UNIT DOSE: 40 MG
     Route: 048
     Dates: start: 20020403, end: 20020805
  26. FAMOTIDINE [Concomitant]
     Dosage: UNIT DOSE: 20 MG
     Route: 048
     Dates: start: 20020911, end: 20021208
  27. MUCOSTA [Concomitant]
     Indication: PROPHYLAXIS AGAINST GASTROINTESTINAL ULCER
     Dosage: UNIT DOSE: 300 MG
     Route: 048
     Dates: start: 20020819, end: 20021209
  28. MUCOSTA [Concomitant]
     Dosage: UNIT DOSE: 300 MG
     Route: 048
     Dates: start: 20030107, end: 20030401

REACTIONS (4)
  - BLOOD CREATINE PHOSPHOKINASE INCREASED [None]
  - MYALGIA [None]
  - PSYCHIATRIC SYMPTOM [None]
  - PYREXIA [None]
